FAERS Safety Report 5481190-9 (Version None)
Quarter: 2007Q4

REPORT INFORMATION
  Report Type: 
  Country: None (occurrence: None)
  Receive Date: 20071010
  Receipt Date: 20071003
  Transmission Date: 20080405
  Serious: Yes (Hospitalization)
  Sender: FDA-Public Use
  Company Number: PHFR2007GB02890

PATIENT
  Age: 51 Year
  Sex: Male

DRUGS (2)
  1. DICLOFENAC SODIUM [Suspect]
  2. VARENICLINE TARTRATE [Suspect]
     Indication: SMOKING CESSATION THERAPY
     Dosage: 0.5 MG, BID
     Route: 048
     Dates: start: 20070730, end: 20070803

REACTIONS (3)
  - CHEST PAIN [None]
  - DRUG INTERACTION [None]
  - NAUSEA [None]
